FAERS Safety Report 14768131 (Version 2)
Quarter: 2018Q3

REPORT INFORMATION
  Report Type: Spontaneous
  Country: GB (occurrence: GB)
  Receive Date: 20180417
  Receipt Date: 20180716
  Transmission Date: 20181010
  Serious: Yes (Other)
  Sender: FDA-Public Use
  Company Number: PHHY2018GB060087

PATIENT
  Age: 43 Year
  Sex: Male

DRUGS (2)
  1. DECAPEPTYL [Suspect]
     Active Substance: TRIPTORELIN
     Indication: PRODUCT USED FOR UNKNOWN INDICATION
     Route: 065
  2. ESTRADIOL. [Suspect]
     Active Substance: ESTRADIOL
     Indication: TRANSGENDER HORMONAL THERAPY
     Route: 065

REACTIONS (9)
  - Interstitial lung disease [Unknown]
  - Raynaud^s phenomenon [Unknown]
  - Gastrooesophageal reflux disease [Unknown]
  - Myositis [Unknown]
  - Overlap syndrome [Unknown]
  - Scleroderma [Unknown]
  - Pulmonary fibrosis [Unknown]
  - Off label use [Unknown]
  - Product use in unapproved indication [Unknown]
